FAERS Safety Report 6462618-4 (Version None)
Quarter: 2009Q4

REPORT INFORMATION
  Report Type: 
  Country: None (occurrence: None)
  Receive Date: 20091130
  Receipt Date: 20091118
  Transmission Date: 20100525
  Serious: Yes (Other)
  Sender: FDA-Public Use
  Company Number: TR-WYE-H12185509

PATIENT
  Age: 17 Year
  Sex: Male

DRUGS (1)
  1. EFFEXOR [Suspect]
     Indication: ANXIETY DISORDER

REACTIONS (6)
  - BODY TEMPERATURE DECREASED [None]
  - HEADACHE [None]
  - HEART RATE INCREASED [None]
  - HYPERTENSION [None]
  - NAUSEA [None]
  - VOMITING [None]
